FAERS Safety Report 22205511 (Version 1)
Quarter: 2023Q2

REPORT INFORMATION
  Report Type: Spontaneous
  Country: US (occurrence: None)
  Receive Date: 20230413
  Receipt Date: 20230413
  Transmission Date: 20230722
  Serious: Yes (Life-Threatening, Hospitalization, Other)
  Sender: FDA-Public Use
  Company Number: US-MLMSERVICE-20230323-4185153-1

PATIENT
  Age: 8 Decade
  Sex: Female

DRUGS (1)
  1. AMIODARONE [Suspect]
     Active Substance: AMIODARONE
     Indication: Atrial fibrillation
     Route: 065

REACTIONS (7)
  - Tracheal compression [Recovered/Resolved]
  - Superior vena cava syndrome [Recovered/Resolved]
  - Autoimmune thyroiditis [Recovered/Resolved]
  - Hypothyroidic goitre [Recovered/Resolved]
  - Goitre [Recovered/Resolved]
  - Condition aggravated [Recovered/Resolved]
  - Hypothyroidism [Recovering/Resolving]
